FAERS Safety Report 5191351-4 (Version None)
Quarter: 2006Q4

REPORT INFORMATION
  Report Type: 
  Country: None (occurrence: None)
  Receive Date: 20061226
  Receipt Date: 20060530
  Transmission Date: 20070319
  Serious: Yes (Hospitalization, Other)
  Sender: FDA-Public Use
  Company Number: US-AMGEN-KDL181389

PATIENT
  Sex: Male
  Weight: 102 kg

DRUGS (13)
  1. EPOGEN [Suspect]
     Indication: RENAL FAILURE CHRONIC
     Route: 042
     Dates: end: 20060601
  2. ARANESP [Suspect]
     Indication: DIALYSIS
     Route: 058
     Dates: start: 20060804
  3. TUMS [Concomitant]
  4. ACTOS [Concomitant]
  5. NIASPAN [Concomitant]
  6. RISPERDAL [Concomitant]
  7. OMEPRAZOLE [Concomitant]
  8. LEXAPRO [Concomitant]
  9. INSULIN [Concomitant]
  10. OXYCODONE HCL [Concomitant]
  11. CALCITRIOL [Concomitant]
  12. CLONIDINE [Concomitant]
  13. SENSIPAR [Concomitant]
     Indication: HYPERPARATHYROIDISM SECONDARY
     Route: 048
     Dates: start: 20050701

REACTIONS (7)
  - ABSCESS [None]
  - ANTI-ERYTHROPOIETIN ANTIBODY POSITIVE [None]
  - CHILLS [None]
  - HAEMOLYSIS [None]
  - IDIOPATHIC THROMBOCYTOPENIC PURPURA [None]
  - PARATHYROIDECTOMY [None]
  - THERAPEUTIC RESPONSE DECREASED [None]
